FAERS Safety Report 5593558-0 (Version None)
Quarter: 2008Q1

REPORT INFORMATION
  Report Type: 
  Country: None (occurrence: None)
  Receive Date: 20080116
  Receipt Date: 20080104
  Transmission Date: 20080703
  Serious: Yes (Death, Other)
  Sender: FDA-Public Use
  Company Number: CA-ROCHE-540425

PATIENT
  Age: 69 Year
  Sex: Male

DRUGS (2)
  1. PEGASYS [Suspect]
     Indication: HEPATITIS C
     Dosage: FORM: VIAL.
     Route: 058
     Dates: start: 20070920, end: 20080102
  2. COPEGUS [Suspect]
     Indication: HEPATITIS C
     Route: 048
     Dates: start: 20070920, end: 20080102

REACTIONS (5)
  - ASTHENIA [None]
  - DEATH [None]
  - HAEMOGLOBIN DECREASED [None]
  - INCONTINENCE [None]
  - NEUTROPHIL COUNT DECREASED [None]
